FAERS Safety Report 14168542 (Version 7)
Quarter: 2020Q3

REPORT INFORMATION
  Report Type: Spontaneous
  Country: JP (occurrence: JP)
  Receive Date: 20171108
  Receipt Date: 20200902
  Transmission Date: 20201102
  Serious: Yes (Death, Other)
  Sender: FDA-Public Use
  Company Number: JP-UNITED THERAPEUTICS-UNT-2016-010052

PATIENT
  Age: 30 Year
  Sex: Male
  Weight: 75.2 kg

DRUGS (13)
  1. TRACLEER [Concomitant]
     Active Substance: BOSENTAN
     Indication: PULMONARY ARTERIAL HYPERTENSION
     Dosage: UNK
     Route: 048
     Dates: start: 200509, end: 201610
  2. REMODULIN [Suspect]
     Active Substance: TREPROSTINIL
     Dosage: 0.082 ?G/KG, CONTINUING
     Route: 058
     Dates: start: 2017
  3. REMODULIN [Suspect]
     Active Substance: TREPROSTINIL
     Dosage: 0.0195 ?G/KG, CONTINUING
     Route: 058
  4. WARFARIN POTASSIUM [Concomitant]
     Active Substance: WARFARIN POTASSIUM
     Indication: PULMONARY ARTERIAL HYPERTENSION
     Dosage: UNK
     Route: 048
     Dates: end: 20171102
  5. REMODULIN [Suspect]
     Active Substance: TREPROSTINIL
     Indication: PULMONARY ARTERIAL HYPERTENSION
     Dosage: 0.123 ?G/KG, CONTINUING
     Route: 041
     Dates: start: 20171101, end: 20171102
  6. NEXIUM [Concomitant]
     Active Substance: ESOMEPRAZOLE MAGNESIUM
     Indication: PULMONARY ARTERIAL HYPERTENSION
     Dosage: UNK
     Route: 048
     Dates: end: 20171102
  7. REMODULIN [Suspect]
     Active Substance: TREPROSTINIL
     Indication: PULMONARY ARTERIAL HYPERTENSION
     Dosage: 0.001 ?G/KG, CONTINUING
     Route: 058
     Dates: start: 20160608, end: 20171031
  8. REMODULIN [Suspect]
     Active Substance: TREPROSTINIL
     Dosage: 0.008 ?G/KG, CONTINUING
     Route: 058
  9. ADCIRCA [Concomitant]
     Active Substance: TADALAFIL
     Indication: PULMONARY ARTERIAL HYPERTENSION
     Dosage: UNK
     Route: 048
     Dates: start: 201403, end: 20171102
  10. ALDACTONE A [Concomitant]
     Active Substance: SPIRONOLACTONE
     Indication: PULMONARY ARTERIAL HYPERTENSION
     Dosage: UNK
     Route: 048
     Dates: end: 20171102
  11. DIART [Concomitant]
     Active Substance: AZOSEMIDE
     Indication: PULMONARY ARTERIAL HYPERTENSION
     Dosage: UNK
     Route: 048
     Dates: end: 20171102
  12. BROTIZOLAM [Concomitant]
     Active Substance: BROTIZOLAM
     Indication: INSOMNIA
     Dosage: UNK
     Route: 048
     Dates: end: 20171102
  13. OPSUMIT [Concomitant]
     Active Substance: MACITENTAN
     Indication: PULMONARY ARTERIAL HYPERTENSION
     Dosage: UNK
     Route: 048
     Dates: start: 201610, end: 20171102

REACTIONS (13)
  - Pulmonary artery aneurysm [Fatal]
  - Aneurysm ruptured [Fatal]
  - Infusion site pain [Not Recovered/Not Resolved]
  - Infusion site induration [Not Recovered/Not Resolved]
  - Pain in extremity [Not Recovered/Not Resolved]
  - Skin injury [Not Recovered/Not Resolved]
  - Headache [Not Recovered/Not Resolved]
  - Somnolence [Unknown]
  - Dermatitis contact [Not Recovered/Not Resolved]
  - Nausea [Recovering/Resolving]
  - Infusion site erythema [Not Recovered/Not Resolved]
  - Diarrhoea [Not Recovered/Not Resolved]
  - Thirst [Unknown]

NARRATIVE: CASE EVENT DATE: 2016
